FAERS Safety Report 6880765-X (Version None)
Quarter: 2010Q3

REPORT INFORMATION
  Report Type: 
  Country: None (occurrence: None)
  Receive Date: 20100728
  Receipt Date: 20100707
  Transmission Date: 20110219
  Serious: Yes (Death, Other)
  Sender: FDA-Public Use
  Company Number: JP-BAYER-201033388GPV

PATIENT
  Age: 66 Year
  Sex: Male
  Weight: 41 kg

DRUGS (17)
  1. MICARDIS [Suspect]
     Indication: PRODUCT USED FOR UNKNOWN INDICATION
  2. ASPIRIN [Suspect]
     Indication: PRODUCT USED FOR UNKNOWN INDICATION
  3. FAMOSTAGINE D [Suspect]
     Indication: PRODUCT USED FOR UNKNOWN INDICATION
  4. CRAVIT [Suspect]
     Indication: COUGH
  5. LENDORMIN [Suspect]
     Indication: PRODUCT USED FOR UNKNOWN INDICATION
  6. INSULIN [Concomitant]
     Indication: TYPE 2 DIABETES MELLITUS
  7. UNASYN [Concomitant]
  8. VORICONAZOLE [Concomitant]
     Indication: BRONCHOPULMONARY ASPERGILLOSIS
  9. ARICEPT [Concomitant]
  10. FLUITRAN [Concomitant]
  11. FLAVERIC [Concomitant]
  12. MUCODYNE [Concomitant]
  13. FINIBAX [Concomitant]
     Indication: PNEUMONIA
  14. MEROPEN [Concomitant]
     Indication: PYREXIA
  15. VANCOMYCIN [Concomitant]
     Indication: BACTERIAL INFECTION
  16. AMPHOTERICIN B [Concomitant]
  17. CIPROFLOXACIN HCL [Concomitant]

REACTIONS (14)
  - BACTERIAL INFECTION [None]
  - BRONCHOPULMONARY ASPERGILLOSIS [None]
  - CIRCULATORY COLLAPSE [None]
  - DISSEMINATED INTRAVASCULAR COAGULATION [None]
  - DRUG INTERACTION [None]
  - DRUG LEVEL INCREASED [None]
  - DYSPHAGIA [None]
  - EYE ROLLING [None]
  - FEELING ABNORMAL [None]
  - HICCUPS [None]
  - INTRACARDIAC THROMBUS [None]
  - LIVER DISORDER [None]
  - PNEUMONIA [None]
  - RESPIRATORY FAILURE [None]
